FAERS Safety Report 5125581-4 (Version None)
Quarter: 2006Q4

REPORT INFORMATION
  Report Type: 
  Country: None (occurrence: None)
  Receive Date: 20061012
  Receipt Date: 20061002
  Transmission Date: 20070319
  Serious: Yes (Other)
  Sender: FDA-Public Use
  Company Number: PHBS2006DE15389

PATIENT
  Age: 72 Year
  Sex: Female

DRUGS (2)
  1. AREDIA [Suspect]
     Indication: PLASMACYTOMA
     Dates: start: 19990201, end: 20040701
  2. PAMIDRONATE DISODIUM [Suspect]
     Indication: PLASMACYTOMA
     Dates: start: 20040401

REACTIONS (2)
  - ENDODONTIC PROCEDURE [None]
  - OSTEONECROSIS [None]
